FAERS Safety Report 21509380 (Version 1)
Quarter: 2022Q4

REPORT INFORMATION
  Report Type: Report from Study
  Country: US (occurrence: US)
  Receive Date: 20221026
  Receipt Date: 20221026
  Transmission Date: 20230112
  Serious: Yes (Hospitalization)
  Sender: FDA-Public Use
  Company Number: US-JAZZ-2022-US-033316

PATIENT
  Sex: Female

DRUGS (4)
  1. XYREM [Suspect]
     Active Substance: SODIUM OXYBATE
     Indication: Narcolepsy
  2. XYREM [Suspect]
     Active Substance: SODIUM OXYBATE
     Indication: Cataplexy
  3. OXYCODONE HYDROCHLORIDE [Concomitant]
     Active Substance: OXYCODONE HYDROCHLORIDE
     Indication: Product used for unknown indication
     Dosage: 0000
     Dates: start: 20221019, end: 20221019
  4. ACETAMINOPHEN\CHLORZOXAZONE [Concomitant]
     Active Substance: ACETAMINOPHEN\CHLORZOXAZONE
     Indication: Product used for unknown indication
     Dosage: 0000
     Dates: start: 20221019, end: 20221019

REACTIONS (1)
  - Injury [Unknown]
